FAERS Safety Report 24438297 (Version 1)
Quarter: 2024Q4

REPORT INFORMATION
  Report Type: Spontaneous
  Country: AU (occurrence: AU)
  Receive Date: 20241015
  Receipt Date: 20241015
  Transmission Date: 20250114
  Serious: Yes (Hospitalization, Other)
  Sender: BRISTOL-MYERS SQUIBB COMPANY
  Company Number: AU-BRISTOL-MYERS SQUIBB COMPANY-2024-161708

PATIENT
  Sex: Male

DRUGS (2)
  1. NIVOLUMAB [Suspect]
     Active Substance: NIVOLUMAB
     Indication: Metastatic malignant melanoma
  2. IPILIMUMAB [Suspect]
     Active Substance: IPILIMUMAB
     Indication: Metastatic malignant melanoma

REACTIONS (2)
  - Neutropenia [Unknown]
  - Septic shock [Recovered/Resolved]
